FAERS Safety Report 18553151 (Version 1)
Quarter: 2020Q4

REPORT INFORMATION
  Report Type: Spontaneous
  Country: KE (occurrence: KE)
  Receive Date: 20201127
  Receipt Date: 20201127
  Transmission Date: 20210114
  Serious: Yes (Hospitalization, Other)
  Sender: FDA-Public Use
  Company Number: KE-LUPIN PHARMACEUTICALS INC.-2020-09479

PATIENT
  Age: 3 Year
  Sex: Male
  Weight: 12.5 kg

DRUGS (1)
  1. ABACAVIR AND LAMIVUDINE [Suspect]
     Active Substance: ABACAVIR SULFATE\LAMIVUDINE
     Indication: PRODUCT USED FOR UNKNOWN INDICATION
     Dosage: 250 TABLETS OR 15 G OF ABACAVIR AND 7.5 G OF LAMIVUDINE
     Route: 048

REACTIONS (12)
  - Hypertension [Recovered/Resolved]
  - Obstructive airways disorder [Recovered/Resolved]
  - Somnolence [Recovered/Resolved]
  - Lethargy [Recovered/Resolved]
  - Dehydration [Recovered/Resolved]
  - Toxicity to various agents [Unknown]
  - Tachycardia [Recovered/Resolved]
  - Loss of consciousness [Recovered/Resolved]
  - Feeding disorder [Recovered/Resolved]
  - Gait inability [Recovered/Resolved]
  - Accidental overdose [Unknown]
  - Prescription drug used without a prescription [Unknown]
